FAERS Safety Report 8878657 (Version 2)
Quarter: 2013Q1

REPORT INFORMATION
  Report Type: Spontaneous
  Country: DE (occurrence: DE)
  Receive Date: 20121030
  Receipt Date: 20130128
  Transmission Date: 20140127
  Serious: Yes (Disabling)
  Sender: FDA-Public Use
  Company Number: DE-JNJFOC-20121013319

PATIENT
  Sex: Male
  Weight: 89 kg

DRUGS (2)
  1. XARELTO [Suspect]
     Indication: HAEMODILUTION
     Route: 048
     Dates: start: 20120515, end: 20120518
  2. LORZAAR [Concomitant]
     Indication: PRODUCT USED FOR UNKNOWN INDICATION
     Route: 065

REACTIONS (2)
  - Monoplegia [Recovering/Resolving]
  - Hypoaesthesia [Recovering/Resolving]
